FAERS Safety Report 25463460 (Version 1)
Quarter: 2025Q2

REPORT INFORMATION
  Report Type: Spontaneous
  Country: GB (occurrence: GB)
  Receive Date: 20250620
  Receipt Date: 20250620
  Transmission Date: 20250717
  Serious: Yes (Other)
  Sender: ELI LILLY AND COMPANY
  Company Number: GB-MHRA-EMIS-1698-30bbb00b-891a-45b4-ab14-2dc79f23db79

PATIENT
  Age: 63 Year
  Sex: Female
  Weight: 105 kg

DRUGS (7)
  1. MOUNJARO [Suspect]
     Active Substance: TIRZEPATIDE
     Indication: Product used for unknown indication
     Dosage: 2.5 MG, WEEKLY (1/W)
     Route: 058
     Dates: start: 20250111
  2. MOUNJARO [Suspect]
     Active Substance: TIRZEPATIDE
     Indication: Product used for unknown indication
     Dosage: 5 MG, WEEKLY (1/W)
     Route: 058
     Dates: end: 20250314
  3. PREGABALIN [Concomitant]
     Active Substance: PREGABALIN
     Indication: Product used for unknown indication
     Dosage: UNK UNK, BID
     Dates: start: 20250131, end: 20250315
  4. FLUCLOXACILLIN [Concomitant]
     Active Substance: FLUCLOXACILLIN
     Indication: Product used for unknown indication
     Dosage: UNK UNK, EVERY 6 HRS
     Dates: start: 20250407
  5. CLOBETASOL [Concomitant]
     Active Substance: CLOBETASOL
     Indication: Product used for unknown indication
     Dosage: 30 ML (APPLY THINLY ONCE A DAY TO SCALP AFTER WASHING HAIR)
     Dates: start: 20250407
  6. PERMETHRIN [Concomitant]
     Active Substance: PERMETHRIN
     Indication: Product used for unknown indication
     Dates: start: 20250407
  7. SEBCO [Concomitant]
     Indication: Product used for unknown indication
     Dates: start: 20250407

REACTIONS (9)
  - Cardiac failure [Unknown]
  - Psoriasis [Unknown]
  - Hepatic cirrhosis [Unknown]
  - Back pain [Recovered/Resolved]
  - Diabetes mellitus [Unknown]
  - Diabetic retinopathy [Unknown]
  - Scabies [Unknown]
  - Diabetes mellitus [Unknown]
  - Prurigo [Unknown]

NARRATIVE: CASE EVENT DATE: 20250101
